FAERS Safety Report 9371828 (Version 2)
Quarter: 2013Q4

REPORT INFORMATION
  Report Type: Spontaneous
  Country: IT (occurrence: IT)
  Receive Date: 20130627
  Receipt Date: 20131029
  Transmission Date: 20140711
  Serious: Yes (Other)
  Sender: FDA-Public Use
  Company Number: IT-PFIZER INC-2013189667

PATIENT
  Age: 42 Year
  Sex: Female
  Weight: 65 kg

DRUGS (3)
  1. EPIRUBICIN HCL [Suspect]
     Indication: INVASIVE DUCTAL BREAST CARCINOMA
     Dosage: 127 MG, CYCLIC
     Route: 042
     Dates: start: 20130204, end: 20130204
  2. TAXOTERE [Suspect]
     Indication: INVASIVE DUCTAL BREAST CARCINOMA
     Dosage: 127 MG, CYCLIC
     Route: 042
     Dates: start: 20130204, end: 20130204
  3. EUTIROX [Concomitant]
     Indication: THYROIDECTOMY

REACTIONS (6)
  - Abdominal pain [Recovered/Resolved]
  - Asthenia [Recovered/Resolved]
  - Nausea [Recovered/Resolved]
  - Pyrexia [Recovered/Resolved]
  - Vomiting [Recovered/Resolved]
  - Faeces discoloured [Recovered/Resolved]
